FAERS Safety Report 10162301 (Version 2)
Quarter: 2014Q2

REPORT INFORMATION
  Report Type: Spontaneous
  Country: US (occurrence: None)
  Receive Date: 20140507
  Receipt Date: 20140620
  Transmission Date: 20141212
  Serious: Yes (Other)
  Sender: FDA-Public Use
  Company Number: M-14-028

PATIENT
  Age: 58 Year
  Sex: Female

DRUGS (5)
  1. PHENTERMINE HCL [Suspect]
     Dosage: UNKNOWN
  2. SYNTHROID [Concomitant]
  3. TOVIAZ [Concomitant]
  4. PREDNISONE [Concomitant]
  5. CALCIUM + VITAMIN D SUPPLEMENT [Concomitant]

REACTIONS (4)
  - Swollen tongue [None]
  - Weight increased [None]
  - Tongue disorder [None]
  - Glossodynia [None]
